FAERS Safety Report 21484343 (Version 6)
Quarter: 2025Q1

REPORT INFORMATION
  Report Type: Report from Study
  Country: CA (occurrence: CA)
  Receive Date: 20221020
  Receipt Date: 20250217
  Transmission Date: 20250409
  Serious: Yes (Hospitalization, Other)
  Sender: TAKEDA
  Company Number: CA-TAKEDA-2019TUS064337

PATIENT
  Age: 77 Year
  Sex: Male

DRUGS (40)
  1. VEDOLIZUMAB [Suspect]
     Active Substance: VEDOLIZUMAB
     Indication: Crohn^s disease
  2. VEDOLIZUMAB [Suspect]
     Active Substance: VEDOLIZUMAB
  3. VEDOLIZUMAB [Suspect]
     Active Substance: VEDOLIZUMAB
  4. VEDOLIZUMAB [Suspect]
     Active Substance: VEDOLIZUMAB
  5. VEDOLIZUMAB [Suspect]
     Active Substance: VEDOLIZUMAB
  6. VEDOLIZUMAB [Suspect]
     Active Substance: VEDOLIZUMAB
  7. VEDOLIZUMAB [Suspect]
     Active Substance: VEDOLIZUMAB
  8. VEDOLIZUMAB [Suspect]
     Active Substance: VEDOLIZUMAB
  9. VEDOLIZUMAB [Suspect]
     Active Substance: VEDOLIZUMAB
  10. VEDOLIZUMAB [Suspect]
     Active Substance: VEDOLIZUMAB
  11. VEDOLIZUMAB [Suspect]
     Active Substance: VEDOLIZUMAB
  12. VEDOLIZUMAB [Suspect]
     Active Substance: VEDOLIZUMAB
  13. VEDOLIZUMAB [Suspect]
     Active Substance: VEDOLIZUMAB
  14. FOLIC ACID [Concomitant]
     Active Substance: FOLIC ACID
  15. ASACOL [Concomitant]
     Active Substance: MESALAMINE
  16. PAROXETINE [Concomitant]
     Active Substance: PAROXETINE
  17. CHOLESTYRAMINE [Concomitant]
     Active Substance: CHOLESTYRAMINE
  18. QUETIAPINE [Concomitant]
     Active Substance: QUETIAPINE
  19. LENOLTEC WITH CODEINE NO 4 [Concomitant]
  20. POLYETHYLENE GLYCOL 3350 [Concomitant]
     Active Substance: POLYETHYLENE GLYCOL 3350
  21. ALENDRONATE [Concomitant]
     Active Substance: ALENDRONATE SODIUM
  22. SYMBICORT [Concomitant]
     Active Substance: BUDESONIDE\FORMOTEROL FUMARATE DIHYDRATE
  23. SPIRIVA [Concomitant]
     Active Substance: TIOTROPIUM BROMIDE MONOHYDRATE
  24. ALBUTEROL [Concomitant]
     Active Substance: ALBUTEROL
  25. LOPERAMIDE [Concomitant]
     Active Substance: LOPERAMIDE
  26. SOLU-MEDROL [Concomitant]
     Active Substance: METHYLPREDNISOLONE SODIUM SUCCINATE
     Indication: Premedication
  27. VITAMIN B [Concomitant]
     Active Substance: VITAMIN B
  28. MESALAMINE [Concomitant]
     Active Substance: MESALAMINE
  29. TAMSULOSIN [Concomitant]
     Active Substance: TAMSULOSIN
  30. CLOPIDOGREL [Concomitant]
     Active Substance: CLOPIDOGREL BISULFATE
  31. ASPIRIN [Concomitant]
     Active Substance: ASPIRIN
  32. PERINDOPRIL [Concomitant]
     Active Substance: PERINDOPRIL
  33. INDAPAMIDE [Concomitant]
     Active Substance: INDAPAMIDE
  34. BISOPROLOL [Concomitant]
     Active Substance: BISOPROLOL
  35. BACLOFEN [Concomitant]
     Active Substance: BACLOFEN
  36. ATORVASTATIN [Concomitant]
     Active Substance: ATORVASTATIN
  37. CHOLESTYRAMINE [Concomitant]
     Active Substance: CHOLESTYRAMINE
  38. RESTORIL [Concomitant]
     Active Substance: TEMAZEPAM
  39. VENTOLIN [Concomitant]
     Active Substance: ALBUTEROL SULFATE
  40. PREGABALIN [Concomitant]
     Active Substance: PREGABALIN

REACTIONS (12)
  - Acute kidney injury [Unknown]
  - Injury [Unknown]
  - Fall [Not Recovered/Not Resolved]
  - Oxygen saturation decreased [Not Recovered/Not Resolved]
  - Blood pressure decreased [Unknown]
  - Blood electrolytes abnormal [Unknown]
  - Heart rate increased [Unknown]
  - Blood pressure increased [Unknown]
  - Heart rate irregular [Unknown]
  - Dyspnoea [Unknown]
  - Dizziness [Unknown]
  - Back pain [Unknown]

NARRATIVE: CASE EVENT DATE: 20200102
